FAERS Safety Report 24318424 (Version 1)
Quarter: 2024Q3

REPORT INFORMATION
  Report Type: Spontaneous
  Country: US (occurrence: US)
  Receive Date: 20240913
  Receipt Date: 20240913
  Transmission Date: 20241017
  Serious: No
  Sender: AMARIN
  Company Number: US-Amarin Pharma  Inc-2024AMR000443

PATIENT
  Age: 78 Year
  Sex: Male

DRUGS (7)
  1. VASCEPA [Suspect]
     Active Substance: ICOSAPENT ETHYL
     Indication: Cerebral arteriosclerosis
     Dates: start: 202405, end: 2024
  2. VASCEPA [Suspect]
     Active Substance: ICOSAPENT ETHYL
     Dosage: RESTARTED, UNKNOWN
     Dates: start: 2024, end: 202408
  3. ASPIRIN [Concomitant]
     Active Substance: ASPIRIN
     Indication: Product used for unknown indication
     Dosage: LOW DOSE ASPIRIN
  4. METOPROLOL SUCCINATE [Concomitant]
     Active Substance: METOPROLOL SUCCINATE
     Indication: Product used for unknown indication
     Dosage: 1 TABLET DAILY
  5. LYSINE [Concomitant]
     Active Substance: LYSINE
     Indication: Product used for unknown indication
     Dosage: 1 TABLET DAILY, IN THE AM
  6. ROSUVASTATIN [Concomitant]
     Active Substance: ROSUVASTATIN\ROSUVASTATIN CALCIUM
     Indication: Product used for unknown indication
     Dosage: 1 TABLET DAILY AT NIGHT
  7. BUPROPION [Concomitant]
     Active Substance: BUPROPION
     Indication: Depression
     Dosage: 150MG QD IN THE MORNING

REACTIONS (5)
  - Contusion [Recovering/Resolving]
  - Glossodynia [Unknown]
  - Oral pain [Unknown]
  - Gingival pain [Unknown]
  - Therapy interrupted [Unknown]

NARRATIVE: CASE EVENT DATE: 20240101
